FAERS Safety Report 7880689-5 (Version None)
Quarter: 2011Q4

REPORT INFORMATION
  Report Type: 
  Country: None (occurrence: None)
  Receive Date: 20111101
  Receipt Date: 20111025
  Transmission Date: 20120403
  Serious: Yes (Life-Threatening, Other)
  Sender: FDA-Public Use
  Company Number: BE-ELI_LILLY_AND_COMPANY-BE201108007574

PATIENT
  Age: 48 Year
  Sex: Male

DRUGS (1)
  1. CIALIS [Suspect]
     Dosage: UNK, PRN

REACTIONS (3)
  - BLOOD PRESSURE INCREASED [None]
  - CARDIAC ARREST [None]
  - BLOOD CHOLESTEROL INCREASED [None]
